FAERS Safety Report 15112970 (Version 1)
Quarter: 2018Q3

REPORT INFORMATION
  Report Type: Report from Study
  Country: IT (occurrence: IT)
  Receive Date: 20180705
  Receipt Date: 20180705
  Transmission Date: 20181010
  Serious: Yes (Hospitalization)
  Sender: FDA-Public Use
  Company Number: IT-TEVA-2018-IT-921231

PATIENT
  Age: 48 Year
  Sex: Female

DRUGS (5)
  1. TAVOR (LORAZEPAM) [Suspect]
     Active Substance: LORAZEPAM
     Route: 048
     Dates: start: 20160617, end: 20160617
  2. SERTRALINE [Suspect]
     Active Substance: SERTRALINE HYDROCHLORIDE
     Indication: DEPRESSION
     Route: 048
     Dates: start: 20160617, end: 20160617
  3. VENLAFAXINA TEVA ITALIA 150 MG CAPSULE RIGIDE A RILASCIO PROLUNGATO [Concomitant]
     Route: 048
  4. VENLAFAXINA TEVA ITALIA 75 MG CAPSULE RIGIDE A RILASCIO PROLUNGATO [Concomitant]
     Route: 048
  5. BISOPROLOLO SANDOZ 1,25 MG COMPRESSE RIVESTITE CON FILM [Concomitant]
     Route: 048

REACTIONS (1)
  - Intentional self-injury [Recovered/Resolved]

NARRATIVE: CASE EVENT DATE: 20160617
